FAERS Safety Report 5444103-1 (Version None)
Quarter: 2007Q3

REPORT INFORMATION
  Report Type: 
  Country: None (occurrence: None)
  Receive Date: 20070905
  Receipt Date: 20070830
  Transmission Date: 20080115
  Serious: Yes (Hospitalization, Other)
  Sender: FDA-Public Use
  Company Number: US-SHR-US-2007-032706

PATIENT
  Age: 39 Year
  Sex: Female
  Weight: 65.8 kg

DRUGS (5)
  1. YAZ [Suspect]
     Dosage: 1 TAB(S), 1X/DAY
     Route: 048
     Dates: start: 20060201
  2. PAXIL [Concomitant]
     Dosage: 25 MG, 1X/DAY
  3. ATIVAN [Concomitant]
     Dosage: .5 MG, 1X/DAY
  4. NEXIUM [Concomitant]
     Dosage: 40 MG, 1X/DAY
  5. TRAZODONE HCL [Concomitant]
     Dosage: 50 MG, 1X/DAY

REACTIONS (3)
  - DYSPNOEA EXERTIONAL [None]
  - FIBROADENOMA OF BREAST [None]
  - PULMONARY EMBOLISM [None]
